FAERS Safety Report 8809171 (Version 1)
Quarter: 2012Q4

REPORT INFORMATION
  Report Type: 
  Country: GB (occurrence: GB)
  Receive Date: 20120926
  Receipt Date: 20120926
  Transmission Date: 20130627
  Serious: Yes (Death)
  Sender: FDA-Public Use
  Company Number: PHHY2012GB083155

PATIENT
  Age: 47 Year

DRUGS (4)
  1. METHOTREXATE [Suspect]
     Indication: RHEUMATOID ARTHRITIS
     Dosage: 10 mg, QW
     Route: 048
  2. METHOTREXATE [Suspect]
     Dosage: 25 mg, QW
     Route: 048
  3. METHOTREXATE [Suspect]
     Route: 058
  4. SULFASALAZINE [Suspect]
     Indication: RHEUMATOID ARTHRITIS
     Dosage: 1 g, BID

REACTIONS (1)
  - Leukaemia [Fatal]
